FAERS Safety Report 6534933-7 (Version None)
Quarter: 2010Q1

REPORT INFORMATION
  Report Type: 
  Country: None (occurrence: None)
  Receive Date: 20100112
  Receipt Date: 20100106
  Transmission Date: 20100710
  Serious: Yes (Hospitalization)
  Sender: FDA-Public Use
  Company Number: JP-ABBOTT-10P-087-0618009-00

PATIENT
  Age: 60 Year
  Sex: Female

DRUGS (4)
  1. KLARICID [Suspect]
     Indication: GASTRIC ULCER
     Route: 048
     Dates: start: 20091030, end: 20091104
  2. SAWACILLIN [Suspect]
     Indication: GASTRIC ULCER
     Dates: start: 20091030, end: 20091104
  3. SAWACILLIN [Concomitant]
     Route: 048
     Dates: start: 20091030, end: 20091104
  4. TAKEPRON [Concomitant]
     Indication: GASTRIC ULCER
     Route: 048
     Dates: start: 20091030, end: 20091104

REACTIONS (1)
  - DRUG ERUPTION [None]
